FAERS Safety Report 8197682-8 (Version None)
Quarter: 2012Q1

REPORT INFORMATION
  Report Type: 
  Country: None (occurrence: None)
  Receive Date: 20120309
  Receipt Date: 20120227
  Transmission Date: 20120608
  Serious: Yes (Disabling, Other)
  Sender: FDA-Public Use
  Company Number: US-AMGEN-KDL288476

PATIENT
  Age: 53 Year
  Sex: Male
  Weight: 77.098 kg

DRUGS (27)
  1. CELEXA [Concomitant]
     Indication: DEPRESSION
     Dosage: 5 MG PER ORALLY DAILY
  2. ASPIRIN [Concomitant]
     Dosage: 325 MG, QD
     Route: 048
  3. RAPTIVA [Concomitant]
     Indication: PSORIASIS
     Dosage: ONCE WEEKLY
     Dates: end: 20061101
  4. IBUPROFEN [Concomitant]
     Indication: PSORIATIC ARTHROPATHY
  5. PRAVACHOL [Concomitant]
     Indication: HYPERCHOLESTEROLAEMIA
     Dosage: 20 MG, UNK
     Route: 048
  6. ENBREL [Suspect]
     Indication: PSORIASIS
  7. CELEXA [Concomitant]
     Dosage: 10 MG, UNK
     Dates: start: 20060311
  8. LESCOL XL [Concomitant]
     Dosage: 80 MG, QD
     Route: 048
     Dates: start: 20060315
  9. CIALIS [Concomitant]
     Dosage: 10 MG, UNK
     Dates: start: 20060808
  10. BUPROPION HCL [Concomitant]
     Dosage: 100 MG, UNK
  11. CEPHALEXIN [Concomitant]
     Dosage: 250 MG, UNK
     Dates: start: 20060614
  12. ALLOPURINOL [Concomitant]
     Indication: GOUT
     Dosage: 100 MG, QD
     Route: 048
  13. TACLONEX [Concomitant]
     Indication: PSORIASIS
     Route: 061
  14. AZITHROMYCIN [Concomitant]
     Dosage: 250 MG, UNK
  15. RAPTIVA [Concomitant]
     Indication: PSORIATIC ARTHROPATHY
  16. LUXIQ [Concomitant]
     Dosage: FOR THE FACE, 0.1%
     Route: 061
     Dates: start: 20060803
  17. ZOCOR [Concomitant]
     Indication: HYPERCHOLESTEROLAEMIA
  18. OLUX [Concomitant]
     Dosage: 0.05%
  19. VITAMIN B12                        /00056201/ [Concomitant]
  20. TRIAMCINOLONE [Concomitant]
     Indication: PSORIASIS
     Dosage: 0.1 %, BID
  21. LESCOL [Concomitant]
     Dosage: 80 MG, UNK
  22. ENBREL [Suspect]
     Indication: PSORIATIC ARTHROPATHY
     Dosage: 50 MG TWICE WEEKLY
     Route: 058
     Dates: start: 20061001, end: 20090701
  23. ACETAMINOPHEN W/ CODEINE [Concomitant]
     Dosage: 30 MG, UNK
  24. WELLBUTRIN [Concomitant]
     Indication: ANXIETY
     Dosage: 100 MG, QD
     Route: 048
  25. ALLOPURINOL [Concomitant]
     Dosage: 100 MG 2 TABLETS DAILY
     Route: 048
  26. HYDROCORTISONE [Concomitant]
     Indication: PSORIASIS
     Dosage: 2.5 % FOR THE FACE
     Route: 061
  27. FISH OIL [Concomitant]

REACTIONS (49)
  - DEAFNESS NEUROSENSORY [None]
  - IMPAIRED WORK ABILITY [None]
  - SEBORRHOEIC KERATOSIS [None]
  - PRURITUS [None]
  - ANAL HAEMORRHAGE [None]
  - HAEMORRHOIDS [None]
  - PINGUECULA [None]
  - STRESS [None]
  - ACTINIC KERATOSIS [None]
  - TRIGEMINAL NEURALGIA [None]
  - OPEN WOUND [None]
  - VITAMIN B12 DECREASED [None]
  - DENTAL CARE [None]
  - FATIGUE [None]
  - GASTROENTERITIS VIRAL [None]
  - DISTURBANCE IN ATTENTION [None]
  - GOUT [None]
  - DYSGEUSIA [None]
  - VISUAL ACUITY REDUCED [None]
  - POLLAKIURIA [None]
  - OCCULT BLOOD POSITIVE [None]
  - SYNCOPE [None]
  - SQUAMOUS CELL CARCINOMA OF SKIN [None]
  - PAIN IN EXTREMITY [None]
  - OROPHARYNGEAL PAIN [None]
  - PSORIATIC ARTHROPATHY [None]
  - ARTHRALGIA [None]
  - DEPRESSION [None]
  - GASTROOESOPHAGEAL REFLUX DISEASE [None]
  - CERUMEN IMPACTION [None]
  - PROSTATITIS [None]
  - TOOTHACHE [None]
  - CONTUSION [None]
  - JOINT STIFFNESS [None]
  - OSTEOARTHRITIS [None]
  - DIARRHOEA [None]
  - HERPES ZOSTER [None]
  - URTICARIA [None]
  - TINNITUS [None]
  - PRESYNCOPE [None]
  - EXCORIATION [None]
  - IRRITABILITY [None]
  - PSORIASIS [None]
  - ACTIVITIES OF DAILY LIVING IMPAIRED [None]
  - DEHYDRATION [None]
  - HEADACHE [None]
  - BUNDLE BRANCH BLOCK RIGHT [None]
  - ABSCESS NECK [None]
  - UPPER RESPIRATORY TRACT INFECTION [None]
